FAERS Safety Report 23436429 (Version 2)
Quarter: 2024Q1

REPORT INFORMATION
  Report Type: Spontaneous
  Country: US (occurrence: US)
  Receive Date: 20240124
  Receipt Date: 20240314
  Transmission Date: 20240410
  Serious: No
  Sender: FDA-Public Use
  Company Number: US-BRISTOL-MYERS SQUIBB COMPANY-2024-010571

PATIENT
  Age: 53 Year
  Sex: Female

DRUGS (1)
  1. ZEPOSIA [Suspect]
     Active Substance: OZANIMOD HYDROCHLORIDE
     Indication: Multiple sclerosis
     Route: 048
     Dates: start: 20240105

REACTIONS (6)
  - Pain [Unknown]
  - Affective disorder [Unknown]
  - Gait disturbance [Unknown]
  - Anhedonia [Unknown]
  - Sleep disorder [Unknown]
  - Multiple sclerosis relapse [Unknown]
